FAERS Safety Report 14305524 (Version 1)
Quarter: 2017Q4

REPORT INFORMATION
  Report Type: Spontaneous
  Country: US (occurrence: US)
  Receive Date: 20171219
  Receipt Date: 20171219
  Transmission Date: 20180321
  Serious: Yes (Hospitalization)
  Sender: FDA-Public Use
  Company Number: US-OTSUKA-DJ20072165

PATIENT

DRUGS (2)
  1. OPC-14597 [Suspect]
     Active Substance: CILOSTAZOL
     Indication: AGITATION
     Route: 030
  2. COCAINE [Concomitant]
     Active Substance: COCAINE
     Route: 065

REACTIONS (4)
  - Pruritus [Unknown]
  - Hypertension [Unknown]
  - Nausea [Unknown]
  - Dizziness [Unknown]
